FAERS Safety Report 9340543 (Version 1)
Quarter: 2013Q2

REPORT INFORMATION
  Report Type: Spontaneous
  Country: US (occurrence: US)
  Receive Date: 20130610
  Receipt Date: 20130610
  Transmission Date: 20140414
  Serious: No
  Sender: FDA-Public Use
  Company Number: US-ASTRAZENECA-2013SE38683

PATIENT
  Age: 44 Year
  Sex: Male

DRUGS (5)
  1. SEROQUEL [Suspect]
     Indication: SLEEP DISORDER
     Route: 048
     Dates: start: 2009
  2. SEROQUEL [Suspect]
     Indication: SLEEP DISORDER
     Dosage: DOSAGE REDUCED
     Route: 048
     Dates: start: 201205
  3. SEROQUEL [Suspect]
     Indication: SLEEP DISORDER
     Route: 048
     Dates: start: 201211
  4. SEROQUEL [Suspect]
     Indication: SLEEP DISORDER
     Route: 048
  5. SEROQUEL [Suspect]
     Indication: SLEEP DISORDER
     Route: 048

REACTIONS (6)
  - Anxiety [Unknown]
  - Depression [Unknown]
  - Feeling abnormal [Unknown]
  - Drug withdrawal syndrome [Unknown]
  - Tremor [Unknown]
  - Intentional drug misuse [Unknown]
